FAERS Safety Report 21496371 (Version 1)
Quarter: 2022Q4

REPORT INFORMATION
  Report Type: Spontaneous
  Country: US (occurrence: US)
  Receive Date: 20221022
  Receipt Date: 20221022
  Transmission Date: 20230112
  Serious: No
  Sender: FDA-Public Use
  Company Number: US-CELLTRION INC.-2022US006770

PATIENT

DRUGS (1)
  1. INFLECTRA [Suspect]
     Active Substance: INFLIXIMAB-DYYB
     Indication: Product used for unknown indication
     Dosage: 100 MG, WEEKLY, DIRECTIONS: INJECT 100 MG AT WEEK 0,2,6 Q 8 WEEKS, IV AT WEEK 0,2,6 QUANTITY:6 REFIL
     Route: 042

REACTIONS (1)
  - Unevaluable event [Unknown]
